FAERS Safety Report 10014588 (Version 1)
Quarter: 2014Q1

REPORT INFORMATION
  Report Type: Report from Study
  Country: AU (occurrence: AU)
  Receive Date: 20140317
  Receipt Date: 20140317
  Transmission Date: 20141002
  Serious: Yes (Congenital Anomaly)
  Sender: FDA-Public Use
  Company Number: AU-UCBSA-114511

PATIENT
  Age: 0 Year
  Sex: Female
  Weight: 3.46 kg

DRUGS (4)
  1. KEPPRA [Suspect]
     Indication: EPILEPSY
     Dosage: 1000 MG
     Route: 064
     Dates: start: 20080904
  2. CARBAMAZEPINE [Suspect]
     Indication: EPILEPSY
     Dosage: 800 MG
     Route: 064
     Dates: start: 200809
  3. FOLIC ACID [Concomitant]
     Indication: VITAMIN SUPPLEMENTATION
     Dosage: 5 MG
     Route: 064
     Dates: start: 200809
  4. ELEVIT [Concomitant]
     Indication: MINERAL SUPPLEMENTATION
     Route: 064

REACTIONS (2)
  - Craniosynostosis [Unknown]
  - Foetal exposure during pregnancy [Recovered/Resolved]
